FAERS Safety Report 18655852 (Version 1)
Quarter: 2020Q4

REPORT INFORMATION
  Report Type: Spontaneous
  Country: US (occurrence: US)
  Receive Date: 20201223
  Receipt Date: 20201223
  Transmission Date: 20210114
  Serious: Yes (Other)
  Sender: FDA-Public Use
  Company Number: PHHY2016US059219

PATIENT
  Age: 27 Year
  Sex: Male

DRUGS (13)
  1. PAZOPANIB [Suspect]
     Active Substance: PAZOPANIB
     Indication: GLIOBLASTOMA
     Route: 065
  2. DABRAFENIB [Suspect]
     Active Substance: DABRAFENIB
     Indication: ANAPLASTIC ASTROCYTOMA
  3. VEMURAFENIB. [Suspect]
     Active Substance: VEMURAFENIB
     Indication: DISEASE PROGRESSION
  4. PAZOPANIB [Suspect]
     Active Substance: PAZOPANIB
     Indication: METASTASES TO MENINGES
  5. TEMOZOLOMIDE. [Suspect]
     Active Substance: TEMOZOLOMIDE
     Indication: ANAPLASTIC ASTROCYTOMA
     Dosage: 6 CYCLES
     Route: 065
  6. EVEROLIMUS. [Suspect]
     Active Substance: EVEROLIMUS
     Indication: ANAPLASTIC ASTROCYTOMA
     Dosage: 4 CYCLES
     Route: 065
  7. PAZOPANIB [Suspect]
     Active Substance: PAZOPANIB
     Indication: ANAPLASTIC ASTROCYTOMA
  8. DABRAFENIB [Suspect]
     Active Substance: DABRAFENIB
     Indication: GLIOBLASTOMA
     Route: 065
  9. RETINOIC ACID [Suspect]
     Active Substance: TRETINOIN
     Indication: ANAPLASTIC ASTROCYTOMA
     Route: 065
  10. PAZOPANIB [Suspect]
     Active Substance: PAZOPANIB
     Indication: CARDIAC NEOPLASM MALIGNANT
  11. LOMUSTINE. [Suspect]
     Active Substance: LOMUSTINE
     Indication: ANAPLASTIC ASTROCYTOMA
     Route: 065
  12. VEMURAFENIB. [Suspect]
     Active Substance: VEMURAFENIB
     Indication: ANAPLASTIC ASTROCYTOMA
     Dosage: 18 CYCLES
     Route: 065
     Dates: start: 201303, end: 201406
  13. VELIPARIB [Suspect]
     Active Substance: VELIPARIB
     Indication: ANAPLASTIC ASTROCYTOMA
     Route: 065

REACTIONS (8)
  - Disease recurrence [Unknown]
  - Glioblastoma [Unknown]
  - Metastases to meninges [Unknown]
  - Product use in unapproved indication [Unknown]
  - Cardiac neoplasm malignant [Unknown]
  - Malignant neoplasm progression [Unknown]
  - Disease progression [Unknown]
  - Anaplastic astrocytoma [Unknown]

NARRATIVE: CASE EVENT DATE: 201204
